FAERS Safety Report 9562347 (Version 3)
Quarter: 2013Q4

REPORT INFORMATION
  Report Type: Report from Study
  Country: US (occurrence: US)
  Receive Date: 20130927
  Receipt Date: 20131219
  Transmission Date: 20140711
  Serious: Yes (Hospitalization, Other)
  Sender: FDA-Public Use
  Company Number: US-ABBVIE-13P-163-1149208-00

PATIENT
  Age: 42 Year
  Sex: Female

DRUGS (10)
  1. HUMIRA [Suspect]
     Indication: CROHN^S DISEASE
     Dates: end: 201302
  2. HUMIRA [Suspect]
     Dates: start: 201304, end: 201308
  3. HUMIRA [Suspect]
  4. PAMINE FORTE [Concomitant]
     Indication: DIARRHOEA
  5. IMODIUM [Concomitant]
     Indication: DIARRHOEA
  6. PROBIOTIC [Concomitant]
     Indication: PRODUCT USED FOR UNKNOWN INDICATION
  7. PRENATAL VITAMIN [Concomitant]
     Indication: PRODUCT USED FOR UNKNOWN INDICATION
  8. DEPO SHOT [Concomitant]
     Indication: PRODUCT USED FOR UNKNOWN INDICATION
  9. XANAX [Concomitant]
     Indication: ANXIETY
     Dosage: 0.5 - 1 MG
  10. VICODIN [Concomitant]
     Indication: PAIN

REACTIONS (30)
  - Asthenia [Unknown]
  - Abdominal pain [Recovering/Resolving]
  - Diarrhoea [Unknown]
  - Vomiting [Recovered/Resolved]
  - Anxiety [Not Recovered/Not Resolved]
  - Palpitations [Unknown]
  - Nervousness [Unknown]
  - Sinusitis [Recovered/Resolved]
  - Abdominal pain [Recovering/Resolving]
  - Gastric ulcer [Not Recovered/Not Resolved]
  - Cough [Recovered/Resolved]
  - Sputum discoloured [Recovered/Resolved]
  - Unevaluable event [Recovering/Resolving]
  - Vomiting [Recovering/Resolving]
  - Dyspepsia [Recovering/Resolving]
  - Abdominal pain [Unknown]
  - Vomiting [Recovering/Resolving]
  - Dyspepsia [Recovering/Resolving]
  - Dyspepsia [Recovering/Resolving]
  - Abdominal adhesions [Recovered/Resolved]
  - Chest pain [Recovering/Resolving]
  - Eructation [Recovering/Resolving]
  - Pyloric stenosis [Recovering/Resolving]
  - Gastric ulcer [Not Recovered/Not Resolved]
  - Weight decreased [Not Recovered/Not Resolved]
  - Umbilical hernia [Not Recovered/Not Resolved]
  - Abdominal pain [Unknown]
  - Nausea [Unknown]
  - Gastrointestinal motility disorder [Unknown]
  - Gastric ulcer [Unknown]
